FAERS Safety Report 10908381 (Version 1)
Quarter: 2015Q1

REPORT INFORMATION
  Report Type: Report from Study
  Country: NL (occurrence: NL)
  Receive Date: 20150312
  Receipt Date: 20150312
  Transmission Date: 20150721
  Serious: Yes (Hospitalization)
  Sender: FDA-Public Use
  Company Number: US-ASTRAZENECA-2015SE18480

PATIENT
  Age: 1 Year
  Sex: Female
  Weight: 11.1 kg

DRUGS (4)
  1. SYNAGIS [Suspect]
     Active Substance: PALIVIZUMAB
     Indication: TRACHEAL STENOSIS
     Dosage: MONTHLY
     Route: 030
     Dates: start: 20141014
  2. SYNAGIS [Suspect]
     Active Substance: PALIVIZUMAB
     Indication: COARCTATION OF THE AORTA
     Route: 030
     Dates: start: 20150119
  3. SYNAGIS [Suspect]
     Active Substance: PALIVIZUMAB
     Indication: COARCTATION OF THE AORTA
     Dosage: MONTHLY
     Route: 030
     Dates: start: 20141014
  4. SYNAGIS [Suspect]
     Active Substance: PALIVIZUMAB
     Indication: TRACHEAL STENOSIS
     Route: 030
     Dates: start: 20150119

REACTIONS (3)
  - Malaise [Unknown]
  - Pyrexia [Recovering/Resolving]
  - Respiratory disorder [Unknown]

NARRATIVE: CASE EVENT DATE: 20150213
